FAERS Safety Report 23932313 (Version 1)
Quarter: 2024Q2

REPORT INFORMATION
  Report Type: Spontaneous
  Country: CA (occurrence: None)
  Receive Date: 20240531
  Receipt Date: 20240531
  Transmission Date: 20240716
  Serious: No
  Sender: FDA-Public Use
  Company Number: None

PATIENT
  Age: 21 Year
  Sex: Female

DRUGS (1)
  1. ARIPIPRAZOLE [Suspect]
     Active Substance: ARIPIPRAZOLE
     Dates: start: 20230815, end: 20240103

REACTIONS (6)
  - Compulsions [None]
  - Impulse-control disorder [None]
  - Intrusive thoughts [None]
  - Paranoia [None]
  - Affect lability [None]
  - Aggression [None]

NARRATIVE: CASE EVENT DATE: 20231101
